FAERS Safety Report 9440415 (Version 1)
Quarter: 2013Q3

REPORT INFORMATION
  Report Type: Spontaneous
  Country: US (occurrence: US)
  Receive Date: 20130805
  Receipt Date: 20130805
  Transmission Date: 20140515
  Serious: Yes (Death)
  Sender: FDA-Public Use
  Company Number: US-PFIZER INC-2013072279

PATIENT
  Age: 78 Year
  Sex: Male

DRUGS (15)
  1. TIKOSYN [Suspect]
     Dosage: 125 UG, 1 CAPSULE EVERY 12 HOURS
     Route: 048
  2. PROVENTIL INHALER [Concomitant]
     Indication: DYSPNOEA
     Dosage: 2-3 PUFFS BY INHALATION ROUTE EVERY 2-3 HOURS DURING THE DAY AS NEEDED
  3. VENTOLIN [Concomitant]
     Dosage: 90 MCG/ACTUATION, 2 PUFFS FOUR TIMES A DAY
  4. ZYLOPRIM [Concomitant]
     Dosage: 300 MG, DAILY
     Route: 048
  5. AMOXIL [Concomitant]
     Dosage: 875 MG, ONCE DAILY
     Route: 048
  6. ASPIRIN [Concomitant]
     Dosage: 81 MG, 1X/DAY
     Route: 048
  7. DIGITEK [Concomitant]
     Dosage: 125 UG, ONCE DAILY
     Route: 048
  8. VITAMIN D [Concomitant]
     Dosage: 2 DF EVERY DAY
  9. ADVAIR DISKUS [Concomitant]
     Dosage: 500-50 MCG/DOSE, 1 PUFF TWICE DAILY
  10. FUROSEMIDE [Concomitant]
     Dosage: 60 MG, ONCE DAILY
     Route: 048
  11. NORCO [Concomitant]
     Indication: PAIN
     Dosage: 5-325 MG: 1-2 TABLETS EVERY 6 HOURS AS NEEDED
  12. DUONEB [Concomitant]
     Dosage: 0.5 MG-3 MG (2.5MG BASE)/3 ML UP TO 4 TIMES DAILY AS NEEDED
  13. NASONEX [Concomitant]
     Dosage: 550 MCG/ACTUATION, 2 SPRAYS EACH NOSTRIL ONCE DAILY AS NEEDED
  14. M.V.I. [Concomitant]
     Dosage: 1 TABLET ONCE DAILY
     Route: 048
  15. PRILOSEC [Concomitant]
     Dosage: 20 MG ONCE DAILY
     Route: 048

REACTIONS (1)
  - Death [Fatal]
